FAERS Safety Report 8361444-9 (Version None)
Quarter: 2012Q2

REPORT INFORMATION
  Report Type: 
  Country: None (occurrence: None)
  Receive Date: 20120515
  Receipt Date: 20110908
  Transmission Date: 20120825
  Serious: No
  Sender: FDA-Public Use
  Company Number: US-ALEXION-A201101369

PATIENT
  Sex: Female
  Weight: 68.027 kg

DRUGS (2)
  1. SOLIRIS [Suspect]
     Indication: PAROXYSMAL NOCTURNAL HAEMOGLOBINURIA
     Dosage: 600 MG UNK
     Route: 042
     Dates: start: 20090827
  2. SOLIRIS [Suspect]
     Dosage: UNK, Q21 DAYS
     Route: 042
     Dates: start: 20110630

REACTIONS (7)
  - PAINFUL RESPIRATION [None]
  - BLOOD TEST ABNORMAL [None]
  - FATIGUE [None]
  - ANAEMIA [None]
  - CHEST PAIN [None]
  - CHEST DISCOMFORT [None]
  - DIZZINESS [None]
